FAERS Safety Report 20325160 (Version 1)
Quarter: 2022Q1

REPORT INFORMATION
  Report Type: Report from Study
  Country: US (occurrence: US)
  Receive Date: 20220111
  Receipt Date: 20220111
  Transmission Date: 20220423
  Serious: Yes (Death, Congenital Anomaly, Other)
  Sender: FDA-Public Use
  Company Number: US-AUROBINDO-AUR-APL-2022-000618

PATIENT

DRUGS (1)
  1. LAMOTRIGINE [Suspect]
     Active Substance: LAMOTRIGINE
     Indication: Epilepsy
     Dosage: 300 MILLIGRAM
     Route: 065
     Dates: start: 20210630

REACTIONS (9)
  - Congenital cystic kidney disease [Fatal]
  - Renal aplasia [Fatal]
  - Pericardial effusion [Fatal]
  - Pleural effusion [Fatal]
  - Ascites [Fatal]
  - Cardiac disorder [Fatal]
  - Oligohydramnios [Fatal]
  - Talipes [Fatal]
  - Foetal exposure during pregnancy [Unknown]

NARRATIVE: CASE EVENT DATE: 20211222
